FAERS Safety Report 10706822 (Version 1)
Quarter: 2015Q1

REPORT INFORMATION
  Report Type: Spontaneous
  Country: US (occurrence: None)
  Receive Date: 20150109
  Receipt Date: 20150109
  Transmission Date: 20150721
  Serious: Yes (Death)
  Sender: FDA-Public Use
  Company Number: 1713747-2014-999186

PATIENT
  Age: 62 Year
  Sex: Female
  Weight: 76.9 kg

DRUGS (17)
  1. OPOGEN [Concomitant]
  2. POTASSIUM CHLORIDE. [Concomitant]
     Active Substance: POTASSIUM CHLORIDE
  3. LIBERTY CYCLER [Concomitant]
     Active Substance: DEVICE
  4. ADVAIR DISKUS [Concomitant]
     Active Substance: FLUTICASONE PROPIONATE\SALMETEROL XINAFOATE
  5. PHYOLYRA [Concomitant]
  6. ASPIRIN. [Concomitant]
     Active Substance: ASPIRIN
  7. CRESTOR [Concomitant]
     Active Substance: ROSUVASTATIN CALCIUM
  8. VITAL-D [Concomitant]
  9. LIBERTY CYCLER TUBING SET [Concomitant]
  10. ALBUTEROL SULFATE. [Concomitant]
     Active Substance: ALBUTEROL SULFATE
  11. AMLODIPINE [Concomitant]
     Active Substance: AMLODIPINE BESYLATE
  12. LISINOPRIL. [Concomitant]
     Active Substance: LISINOPRIL
  13. MAG-OXIDE [Concomitant]
  14. DELFLEX WITH DEXTROSE 1.5% LOW MAGNESIUM LOW CALCIUM [Suspect]
     Active Substance: CALCIUM CHLORIDE\DEXTROSE MONOHYDRATE\MAGNESIUM CHLORIDE\SODIUM CHLORIDE\SODIUM LACTATE
     Indication: CHRONIC KIDNEY DISEASE
     Dosage: PERITONEAL DIALYSIS
  15. FLURBIPROFEN. [Concomitant]
     Active Substance: FLURBIPROFEN
  16. SENSIPAR [Concomitant]
     Active Substance: CINACALCET HYDROCHLORIDE
  17. VIGOMOX [Concomitant]

REACTIONS (1)
  - Death [None]

NARRATIVE: CASE EVENT DATE: 20140913
